FAERS Safety Report 5205500-2 (Version None)
Quarter: 2006Q4

REPORT INFORMATION
  Report Type: 
  Country: None (occurrence: None)
  Receive Date: 20061027
  Receipt Date: 20060516
  Transmission Date: 20070319
  Serious: Yes (Other)
  Sender: FDA-Public Use
  Company Number: HQWYE394418MAY06

PATIENT
  Age: 51 Year
  Sex: Female
  Weight: 93.07 kg

DRUGS (1)
  1. PREMARIN [Suspect]
     Indication: OESTROGEN REPLACEMENT THERAPY
     Dosage: 0.625 MG DAILY, ORAL
     Route: 048
     Dates: start: 20060509, end: 20060512

REACTIONS (3)
  - EYELID OEDEMA [None]
  - EYELIDS PRURITUS [None]
  - HYPERSENSITIVITY [None]
